FAERS Safety Report 8889213 (Version 2)
Quarter: 2013Q1

REPORT INFORMATION
  Report Type: Report from Study
  Country: KR (occurrence: KR)
  Receive Date: 20121106
  Receipt Date: 20130308
  Transmission Date: 20140127
  Serious: Yes (Hospitalization)
  Sender: FDA-Public Use
  Company Number: KR-ROCHE-1047403

PATIENT
  Age: 69 Year
  Sex: Male
  Weight: 62 kg

DRUGS (52)
  1. TRASTUZUMAB [Suspect]
     Indication: GASTRIC CANCER
     Dosage: LOADING DOSE
     Route: 042
     Dates: start: 20120126
  2. TRASTUZUMAB [Suspect]
     Dosage: MAINTENANCE DOSE; 390MG RECENT DOSE ON 17 FEB 2012
     Route: 042
     Dates: start: 20130217
  3. PERTUZUMAB [Suspect]
     Indication: GASTRIC CANCER
     Dosage: LOADING DOSE
     Route: 042
     Dates: start: 20120126
  4. PERTUZUMAB [Suspect]
     Dosage: MAINTENANCE DOSE;420MG RECENT DOSE ON 17 FEB 2012
     Route: 042
     Dates: start: 20130217
  5. CAPECITABINE [Suspect]
     Indication: GASTRIC CANCER
     Dosage: RECENT DOSE ON 02 MAR 2012, LAST DOSE: 1000MG/M2
     Route: 048
     Dates: start: 20120126
  6. CISPLATIN [Suspect]
     Indication: GASTRIC CANCER
     Dosage: RECENT DOSE ON 17 FEB 2012, LAST DOSE: 40MG/M2
     Route: 042
     Dates: start: 20120126
  7. ULTRACET [Concomitant]
     Indication: PROCTALGIA
     Route: 048
     Dates: start: 20120105, end: 20120218
  8. LOSARTAN [Concomitant]
     Indication: HYPERTENSION
     Route: 048
     Dates: start: 200712, end: 20120308
  9. TAMSULOSIN [Concomitant]
     Indication: BENIGN PROSTATIC HYPERPLASIA
     Route: 048
     Dates: start: 20120314, end: 20120628
  10. FINASTERIDE [Concomitant]
  11. BEECOM HEXA [Concomitant]
     Route: 048
     Dates: start: 201007, end: 20120308
  12. DEXAMETHASONE [Concomitant]
     Indication: NAUSEA
     Route: 042
     Dates: start: 20120126, end: 20120612
  13. RAMOSETRON [Concomitant]
     Indication: NAUSEA
     Route: 042
     Dates: start: 20120126, end: 20120612
  14. CHLORPHENIRAMINE [Concomitant]
     Indication: HYPERSENSITIVITY
     Route: 042
     Dates: start: 20120126, end: 20120724
  15. APREPITANT [Concomitant]
     Indication: NAUSEA
     Route: 048
     Dates: start: 20120127, end: 20120614
  16. APREPITANT [Concomitant]
     Route: 048
     Dates: start: 20120126, end: 20120612
  17. POTASSIUM CHLORIDE [Concomitant]
     Route: 042
     Dates: start: 20120217, end: 20120612
  18. MAGNESIUM SULPHATE [Concomitant]
     Route: 042
     Dates: start: 20120217, end: 20120612
  19. DEXAMETHASONE [Concomitant]
     Indication: NAUSEA
     Route: 048
     Dates: start: 20120127, end: 20120615
  20. RANITIDINE [Concomitant]
     Indication: GASTRITIS
     Route: 048
     Dates: start: 20120127, end: 20120615
  21. METOCLOPRAMIDE [Concomitant]
     Indication: NAUSEA
     Dosage: 2 TABLETS
     Route: 048
     Dates: start: 20120128, end: 20120406
  22. MEGESTROL ACETATE [Concomitant]
     Indication: DECREASED APPETITE
     Route: 048
     Dates: start: 20120128, end: 20120626
  23. ACETAMINOPHEN [Concomitant]
     Indication: INFLUENZA LIKE ILLNESS
     Dosage: 2 TABLETS ENCAPSULATED
     Route: 048
     Dates: start: 20120206, end: 20120216
  24. CODENAL [Concomitant]
     Indication: INFLUENZA LIKE ILLNESS
     Dosage: 1.5 TABLETS
     Route: 048
     Dates: start: 20120206, end: 20120209
  25. ACETYLCYSTEINE [Concomitant]
     Indication: INFLUENZA LIKE ILLNESS
     Dosage: ONE TABLET
     Route: 048
     Dates: start: 20120206, end: 20120209
  26. AMBROXOL HYDROCHLORIDE [Concomitant]
     Indication: INFLUENZA LIKE ILLNESS
     Dosage: 1 TABLET
     Route: 048
     Dates: start: 20120209, end: 20120216
  27. MUCOLASE [Concomitant]
  28. FUROSEMIDE [Concomitant]
  29. TRAMADOL HCL [Concomitant]
     Route: 065
     Dates: start: 20120310, end: 20120310
  30. ACETYLCYSTEINE [Concomitant]
     Indication: AZOTAEMIA
     Route: 065
     Dates: start: 20120310, end: 20120310
  31. LACTOBACILLUS ACIDOPHILUS [Concomitant]
     Indication: DIARRHOEA
     Route: 048
     Dates: start: 20120310, end: 20120321
  32. FENTANYL TRANSDERMAL [Concomitant]
     Indication: PALMAR-PLANTAR ERYTHRODYSAESTHESIA SYNDROME
     Route: 062
     Dates: start: 20120310, end: 20120310
  33. POTASSIUM CHLORIDE [Concomitant]
     Route: 042
     Dates: start: 20120311, end: 20120311
  34. TAZOCIN [Concomitant]
     Indication: PNEUMONIA
     Dosage: 1 AMPULE
     Route: 042
     Dates: start: 20120321, end: 20120327
  35. TAZOCIN [Concomitant]
     Dosage: 1 AMPULE
     Route: 042
     Dates: start: 20120311, end: 20120314
  36. ALBUMIN [Concomitant]
     Indication: HYPOALBUMINAEMIA
     Route: 042
     Dates: start: 20120311, end: 20120311
  37. SCOPOLAMINE [Concomitant]
     Indication: ABDOMINAL PAIN
     Dosage: 1 AMPULE
     Route: 042
     Dates: start: 20120311, end: 20120311
  38. LOPERAMIDE OXIDE [Concomitant]
     Indication: DIARRHOEA
     Dosage: 2 TABLETS
     Route: 048
     Dates: start: 20120311, end: 20120406
  39. MUPIROCIN [Concomitant]
     Indication: PALMAR-PLANTAR ERYTHRODYSAESTHESIA SYNDROME
     Route: 065
     Dates: start: 20120313, end: 20120321
  40. SODIUM CHLORIDE [Concomitant]
     Route: 042
     Dates: start: 20120317, end: 20120317
  41. LEVOFLOXACIN [Concomitant]
     Indication: PNEUMONIA
     Route: 042
     Dates: start: 20120314, end: 20120327
  42. CEFEPIME [Concomitant]
     Indication: PNEUMONIA
     Route: 065
     Dates: start: 20120314, end: 20120321
  43. MULTI VITAMIN ENERGY PLUS [Concomitant]
     Indication: DECREASED APPETITE
     Dosage: 1 AMPULE
     Route: 042
     Dates: start: 20120316, end: 20120320
  44. OFLOXACIN [Concomitant]
     Indication: BLEPHARITIS
     Dosage: 1 DROPS
     Route: 047
     Dates: start: 20120312, end: 2012
  45. CARBOXYMETHYLCELLULOSE [Concomitant]
     Indication: BLEPHARITIS
     Dosage: 1 DROPS
     Route: 047
     Dates: start: 20120312, end: 2012
  46. SILYMARIN [Concomitant]
     Dosage: 1 CAPSULE
     Route: 048
     Dates: start: 20120328, end: 20120329
  47. FAMOTIDIN [Concomitant]
     Indication: GASTRITIS
     Route: 048
     Dates: start: 20120321, end: 20120328
  48. VITAMIN B-COMPLEX FORTE [Concomitant]
     Indication: DECREASED APPETITE
     Dosage: 1 AMPULE
     Route: 042
     Dates: start: 20120321, end: 20120328
  49. SODIUM BICARBONATE [Concomitant]
     Indication: STOMATITIS
     Route: 065
     Dates: start: 20120203, end: 20120206
  50. FINASTERIDE [Concomitant]
     Indication: BENIGN PROSTATIC HYPERPLASIA
     Route: 048
     Dates: start: 20120329, end: 2012
  51. TERBINAFINE [Concomitant]
     Indication: PALMAR-PLANTAR ERYTHRODYSAESTHESIA SYNDROME
     Dosage: MM
     Route: 061
     Dates: start: 20120313, end: 20120321
  52. WARFARIN SODIUM [Concomitant]
     Indication: DEEP VEIN THROMBOSIS
     Route: 048
     Dates: start: 201208, end: 2012

REACTIONS (1)
  - Pneumonia [Recovered/Resolved]
